FAERS Safety Report 5615569-9 (Version None)
Quarter: 2008Q1

REPORT INFORMATION
  Report Type: 
  Country: None (occurrence: None)
  Receive Date: 20080205
  Receipt Date: 20080205
  Transmission Date: 20080703
  Serious: Yes (Hospitalization)
  Sender: FDA-Public Use
  Company Number: None

PATIENT
  Sex: Male
  Weight: 122.5 kg

DRUGS (3)
  1. SEROQUEL [Suspect]
     Indication: BIPOLAR DISORDER
     Dosage: 600MG HS PO
     Route: 048
     Dates: start: 20080104, end: 20080109
  2. REGLAN [Suspect]
     Indication: NAUSEA
     Dosage: 10MG Q6HR IV
     Route: 042
     Dates: start: 20080107, end: 20080110
  3. HALDOL [Concomitant]

REACTIONS (2)
  - APPENDICITIS [None]
  - NEUROLEPTIC MALIGNANT SYNDROME [None]
